FAERS Safety Report 24664455 (Version 1)
Quarter: 2024Q4

REPORT INFORMATION
  Report Type: Spontaneous
  Country: US (occurrence: None)
  Receive Date: 20241126
  Receipt Date: 20241126
  Transmission Date: 20250114
  Serious: No
  Sender: Public
  Company Number: None

PATIENT
  Age: 64 Year
  Sex: Male
  Weight: 66.65 kg

DRUGS (2)
  1. XELODA [Suspect]
     Active Substance: CAPECITABINE
     Dates: end: 20241121
  2. ELOXATIN [Suspect]
     Active Substance: OXALIPLATIN
     Dates: end: 20241121

REACTIONS (4)
  - Cold shock response [None]
  - Adverse reaction [None]
  - Dyspnoea [None]
  - Swollen tongue [None]

NARRATIVE: CASE EVENT DATE: 20241121
